FAERS Safety Report 11702520 (Version 1)
Quarter: 2015Q4

REPORT INFORMATION
  Report Type: Spontaneous
  Country: FR (occurrence: FR)
  Receive Date: 20151105
  Receipt Date: 20151105
  Transmission Date: 20160304
  Serious: Yes (Life-Threatening, Hospitalization)
  Sender: FDA-Public Use
  Company Number: FR-ASTRAZENECA-2015SF07413

PATIENT
  Age: 26 Year
  Sex: Male

DRUGS (7)
  1. VALDOXAN [Concomitant]
     Active Substance: AGOMELATINE
  2. TERCIAN [Suspect]
     Active Substance: CYAMEMAZINE
     Indication: BIPOLAR II DISORDER
     Route: 048
  3. LAMICTAL [Concomitant]
     Active Substance: LAMOTRIGINE
  4. XEROQUEL [Suspect]
     Active Substance: QUETIAPINE FUMARATE
     Indication: BIPOLAR II DISORDER
     Route: 048
     Dates: start: 20150825, end: 20150825
  5. XEROQUEL [Suspect]
     Active Substance: QUETIAPINE FUMARATE
     Indication: BIPOLAR II DISORDER
     Route: 048
  6. TERALITHE [Suspect]
     Active Substance: LITHIUM CARBONATE
     Indication: BIPOLAR II DISORDER
     Route: 048
     Dates: start: 20150825, end: 20150825
  7. TERCIAN [Suspect]
     Active Substance: CYAMEMAZINE
     Indication: BIPOLAR II DISORDER
     Route: 048
     Dates: start: 20150825, end: 20150825

REACTIONS (9)
  - Intentional overdose [Unknown]
  - Pneumonia aspiration [Recovered/Resolved]
  - Antipsychotic drug level increased [Recovered/Resolved]
  - Bundle branch block [Unknown]
  - Electrocardiogram QT prolonged [Unknown]
  - Blood creatinine increased [Unknown]
  - Hypotension [Recovered/Resolved]
  - Vomiting [Recovered/Resolved]
  - Coma [Recovered/Resolved]

NARRATIVE: CASE EVENT DATE: 20150826
